FAERS Safety Report 7611444-9 (Version None)
Quarter: 2011Q3

REPORT INFORMATION
  Report Type: 
  Country: None (occurrence: None)
  Receive Date: 20110715
  Receipt Date: 20110615
  Transmission Date: 20111222
  Serious: No
  Sender: FDA-Public Use
  Company Number: US-BAYER-2011-053887

PATIENT
  Age: 43 Year
  Sex: Female
  Weight: 82 kg

DRUGS (2)
  1. ALEVE (CAPLET) [Suspect]
     Indication: PAIN IN EXTREMITY
  2. ALEVE (CAPLET) [Suspect]
     Indication: ANALGESIC THERAPY
     Dosage: 880 MG, ONCE
     Route: 048
     Dates: start: 20110615, end: 20110615

REACTIONS (2)
  - PAIN IN EXTREMITY [None]
  - NO ADVERSE EVENT [None]
